FAERS Safety Report 20779085 (Version 1)
Quarter: 2022Q2

REPORT INFORMATION
  Report Type: Spontaneous
  Country: US (occurrence: US)
  Receive Date: 20220503
  Receipt Date: 20220503
  Transmission Date: 20220721
  Serious: No
  Sender: FDA-Public Use
  Company Number: US-PFIZER INC-202200634289

PATIENT
  Age: 74 Year
  Sex: Female
  Weight: 51.71 kg

DRUGS (1)
  1. PAXLOVID [Suspect]
     Active Substance: NIRMATRELVIR\RITONAVIR
     Indication: COVID-19 treatment
     Dosage: 3 DF, 2X/DAY((UNKNOWN DOSAGE BUT THREE TABLETS SWALLOWED TWICE A DAY MORNING AND NIGHT)
     Dates: start: 20220419, end: 20220425

REACTIONS (6)
  - Dysgeusia [Recovered/Resolved]
  - Product taste abnormal [Recovered/Resolved]
  - Pigmentation disorder [Not Recovered/Not Resolved]
  - Arthralgia [Not Recovered/Not Resolved]
  - Peripheral swelling [Not Recovered/Not Resolved]
  - Peripheral swelling [Not Recovered/Not Resolved]

NARRATIVE: CASE EVENT DATE: 20220419
